FAERS Safety Report 7201248-3 (Version None)
Quarter: 2010Q4

REPORT INFORMATION
  Report Type: 
  Country: None (occurrence: None)
  Receive Date: 20101229
  Receipt Date: 20101222
  Transmission Date: 20110411
  Serious: Yes (Death, Hospitalization)
  Sender: FDA-Public Use
  Company Number: PHHY2010CN86915

PATIENT
  Age: 39 Year
  Sex: Female

DRUGS (3)
  1. AMINOPHYLLINE [Suspect]
  2. CEPHALOSPORINE [Suspect]
  3. SHUANHUANGLIAN [Suspect]
     Dosage: 30 ML

REACTIONS (9)
  - DEATH [None]
  - DYSPNOEA [None]
  - HEART RATE DECREASED [None]
  - HYPOVENTILATION [None]
  - LOSS OF CONSCIOUSNESS [None]
  - MALAISE [None]
  - PALLOR [None]
  - RESUSCITATION [None]
  - TACHYPNOEA [None]
